FAERS Safety Report 4898963-3 (Version None)
Quarter: 2006Q1

REPORT INFORMATION
  Report Type: 
  Country: None (occurrence: None)
  Receive Date: 20060202
  Receipt Date: 20060126
  Transmission Date: 20060701
  Serious: Yes (Disabling)
  Sender: FDA-Public Use
  Company Number: US-MERCK-0601USA03152

PATIENT
  Age: 47 Year
  Sex: Female

DRUGS (2)
  1. FOSAMAX PLUS D [Suspect]
     Indication: OSTEOPENIA
     Route: 048
     Dates: start: 20060122
  2. ZELNORM [Concomitant]
     Route: 065

REACTIONS (2)
  - ARTHRALGIA [None]
  - CHEST PAIN [None]
